FAERS Safety Report 8342727-5 (Version None)
Quarter: 2012Q2

REPORT INFORMATION
  Report Type: 
  Country: None (occurrence: None)
  Receive Date: 20120503
  Receipt Date: 20110323
  Transmission Date: 20120825
  Serious: Yes (Death, Hospitalization, Other)
  Sender: FDA-Public Use
  Company Number: IE-022334

PATIENT
  Age: 71 Year
  Sex: Male

DRUGS (1)
  1. (CHLORAMBUCIL) [Suspect]
     Indication: CHRONIC LYMPHOCYTIC LEUKAEMIA
     Dosage: 10MGM2 AT DAYS 1-7 EVERY 28 DAYS ORAL
     Route: 048
     Dates: start: 20110303

REACTIONS (11)
  - PLATELET COUNT DECREASED [None]
  - CHRONIC LYMPHOCYTIC LEUKAEMIA [None]
  - NEOPLASM PROGRESSION [None]
  - RED BLOOD CELL COUNT DECREASED [None]
  - WHITE BLOOD CELL COUNT DECREASED [None]
  - RESPIRATORY TRACT INFECTION [None]
  - FEBRILE NEUTROPENIA [None]
  - COUGH [None]
  - PANCYTOPENIA [None]
  - HAEMOGLOBIN DECREASED [None]
  - MONOCYTE COUNT DECREASED [None]
